FAERS Safety Report 10235599 (Version 1)
Quarter: 2014Q2

REPORT INFORMATION
  Report Type: Report from Study
  Country: US (occurrence: US)
  Receive Date: 20140613
  Receipt Date: 20140613
  Transmission Date: 20141212
  Serious: Yes (Life-Threatening, Hospitalization)
  Sender: FDA-Public Use
  Company Number: US-BAYER-2014-088092

PATIENT
  Age: 57 Year
  Sex: Male

DRUGS (4)
  1. SORAFENIB (RAF KINASE INHIBITOR) [Suspect]
     Indication: GLIOBLASTOMA MULTIFORME
     Dosage: 400 MG, BID (7 DAYS ON, 7 DAYS OFF)
     Route: 048
     Dates: start: 20131220, end: 20131225
  2. EVEROLIMUS [Suspect]
     Indication: GLIOBLASTOMA MULTIFORME
     Dosage: 5 MG, QD
     Route: 048
     Dates: start: 20131220, end: 20131225
  3. DEXAMETHASONE [Concomitant]
     Dosage: 4 MG, Q 6H
     Route: 048
  4. TRIAMTERENE AND HYDROCHLOROTHIAZIDE [Concomitant]
     Dosage: 37.5-25 QD

REACTIONS (1)
  - Cerebrovascular accident [Not Recovered/Not Resolved]
